FAERS Safety Report 5088795-8 (Version None)
Quarter: 2006Q3

REPORT INFORMATION
  Report Type: 
  Country: None (occurrence: None)
  Receive Date: 20060825
  Receipt Date: 20060403
  Transmission Date: 20061208
  Serious: Yes (Other)
  Sender: FDA-Public Use
  Company Number: 13323/0037

PATIENT
  Age: 74 Year
  Sex: Female

DRUGS (9)
  1. CEFUROXIME [Suspect]
     Indication: POSTOPERATIVE CARE
     Route: 058
  2. LIDOCAINE [Suspect]
     Dosage: 4ML SINGLE DOSE
     Route: 047
  3. BUPIVACAINE [Suspect]
     Dosage: 4ML SINGLE DOSE
     Route: 047
  4. HYALURONIDASE [Suspect]
     Dosage: 4ML SINGLE DOSE
     Route: 047
  5. POVIDONE IODINE [Suspect]
     Indication: PROPHYLAXIS
     Route: 061
  6. PREDNISOLONE [Suspect]
     Indication: POSTOPERATIVE CARE
     Route: 047
  7. CHLORAMPHENICOL [Suspect]
     Route: 047
  8. PROXYMETACAINE [Concomitant]
     Route: 047
  9. ACETAZOLAMIDE [Concomitant]
     Route: 065

REACTIONS (7)
  - CONJUNCTIVAL OEDEMA [None]
  - EXOPHTHALMOS [None]
  - EYE PAIN [None]
  - OEDEMA [None]
  - PAROPHTHALMIA [None]
  - PERIORBITAL OEDEMA [None]
  - VISUAL ACUITY REDUCED [None]
